FAERS Safety Report 4290285-7 (Version None)
Quarter: 2004Q1

REPORT INFORMATION
  Report Type: 
  Country: None (occurrence: None)
  Receive Date: 20040209
  Receipt Date: 20040209
  Transmission Date: 20041129
  Serious: Yes (Life-Threatening)
  Sender: FDA-Public Use
  Company Number: None

PATIENT
  Age: 47 Year
  Sex: Female
  Weight: 83.9154 kg

DRUGS (2)
  1. CYCLOSPORINE [Suspect]
     Indication: HYPERTENSION
     Dosage: 2 A DAY
  2. CYCLOSPORINE [Suspect]
     Indication: RENAL FAILURE
     Dosage: 2 A DAY

REACTIONS (2)
  - DRUG LEVEL DECREASED [None]
  - PHARMACEUTICAL PRODUCT COMPLAINT [None]
